FAERS Safety Report 13058396 (Version 1)
Quarter: 2016Q4

REPORT INFORMATION
  Report Type: Spontaneous
  Country: JP (occurrence: JP)
  Receive Date: 20161223
  Receipt Date: 20161223
  Transmission Date: 20170207
  Serious: Yes (Death)
  Sender: FDA-Public Use
  Company Number: PHBS1999JP10947

PATIENT
  Age: 26 Year
  Sex: Female
  Weight: 45 kg

DRUGS (4)
  1. CARBAMAZEPINE. [Suspect]
     Active Substance: CARBAMAZEPINE
     Indication: SUICIDE ATTEMPT
     Route: 048
     Dates: start: 19970305, end: 19970305
  2. CARBAMAZEPINE. [Suspect]
     Active Substance: CARBAMAZEPINE
     Route: 048
     Dates: start: 19970305, end: 19970305
  3. BROTIZOLAM [Suspect]
     Active Substance: BROTIZOLAM
     Route: 065
     Dates: start: 19970305, end: 19970305
  4. DIAZEPAM. [Suspect]
     Active Substance: DIAZEPAM
     Route: 065
     Dates: start: 19970305, end: 19970305

REACTIONS (12)
  - Overdose [Fatal]
  - Speech disorder [Unknown]
  - Hypotension [Unknown]
  - Ventricular extrasystoles [Unknown]
  - Electrocardiogram QRS complex prolonged [Unknown]
  - Ventricular tachycardia [Unknown]
  - Cardiac fibrillation [Unknown]
  - Bradycardia [Unknown]
  - Seizure [Unknown]
  - Completed suicide [Fatal]
  - Gait disturbance [Unknown]
  - Somnolence [Unknown]

NARRATIVE: CASE EVENT DATE: 19970305
